FAERS Safety Report 6082941-5 (Version None)
Quarter: 2009Q1

REPORT INFORMATION
  Report Type: 
  Country: None (occurrence: None)
  Receive Date: 20090218
  Receipt Date: 20090211
  Transmission Date: 20090719
  Serious: Yes (Other)
  Sender: FDA-Public Use
  Company Number: GB-B.I. PHARMACEUTICALS,INC./RIDGEFIELD-2009-UK-00102UK

PATIENT
  Age: 85 Year
  Sex: Female
  Weight: 65.77 kg

DRUGS (6)
  1. MOBIC [Suspect]
     Indication: PAIN
     Dosage: 7.5MG
     Route: 048
     Dates: start: 20090109, end: 20090110
  2. MOBIC [Suspect]
     Dosage: 7.5MG
     Route: 048
     Dates: start: 20090114, end: 20090117
  3. FUROSEMIDE [Concomitant]
     Route: 048
  4. QUININE [Concomitant]
     Route: 048
  5. VITAMIN TAB [Concomitant]
  6. ZOPICLONE [Concomitant]
     Route: 048

REACTIONS (4)
  - ERYTHEMA [None]
  - EYE PRURITUS [None]
  - PRURITUS [None]
  - SWELLING FACE [None]
